FAERS Safety Report 9490843 (Version 1)
Quarter: 2013Q3

REPORT INFORMATION
  Report Type: Spontaneous
  Country: US (occurrence: None)
  Receive Date: 20130826
  Receipt Date: 20130826
  Transmission Date: 20140515
  Serious: Yes (Death)
  Sender: FDA-Public Use
  Company Number: 2013-0645

PATIENT
  Age: 78 Year
  Sex: Female

DRUGS (3)
  1. KRYPOLIS [Suspect]
     Indication: PLASMA CELL MYELOMA
     Dosage: 34 MG 2 IN 1 WEEK, IMTRAVENOUS
     Route: 042
     Dates: start: 20130219
  2. ADVIL (IBUPROFEN (IBUPROFEN) [Concomitant]
  3. GLIPIZIDE (GLIPIZIDE) (GLIPIZIDE) [Concomitant]

REACTIONS (9)
  - Fatigue [None]
  - Condition aggravated [None]
  - Refusal of treatment by patient [None]
  - Blood count abnormal [None]
  - Thoracic vertebral fracture [None]
  - Malaise [None]
  - Diarrhoea [None]
  - Weight decreased [None]
  - Protein total increased [None]
